FAERS Safety Report 12770891 (Version 1)
Quarter: 2016Q3

REPORT INFORMATION
  Report Type: Spontaneous
  Country: US (occurrence: US)
  Receive Date: 20160922
  Receipt Date: 20160922
  Transmission Date: 20161109
  Serious: Yes (Other)
  Sender: FDA-Public Use
  Company Number: None

PATIENT
  Age: 61 Year
  Weight: 47.17 kg

DRUGS (7)
  1. MULTI VITAMIN (CENTRUM SILVER) [Concomitant]
  2. PREMPRO [Concomitant]
     Active Substance: ESTROGENS, CONJUGATED\MEDROXYPROGESTERONE ACETATE
  3. VITAMIN C [Concomitant]
     Active Substance: ASCORBIC ACID
  4. ZIOPTAN [Suspect]
     Active Substance: TAFLUPROST
  5. LUMIGAN [Suspect]
     Active Substance: BIMATOPROST
     Indication: GLAUCOMA
     Route: 047
     Dates: start: 20150504, end: 20151123
  6. CALCIUM PLUS VIT D3 [Concomitant]
  7. VITAMIN D [Concomitant]
     Active Substance: CHOLECALCIFEROL

REACTIONS (2)
  - Iris disorder [None]
  - Scleral disorder [None]

NARRATIVE: CASE EVENT DATE: 20151010
